FAERS Safety Report 14551490 (Version 1)
Quarter: 2018Q1

REPORT INFORMATION
  Report Type: Spontaneous
  Country: IT (occurrence: IT)
  Receive Date: 20180220
  Receipt Date: 20180220
  Transmission Date: 20180509
  Serious: Yes (Hospitalization)
  Sender: FDA-Public Use
  Company Number: IT-CONCORDIA PHARMACEUTICALS INC.-E2B_00009964

PATIENT
  Age: 92 Year
  Sex: Female

DRUGS (7)
  1. QUETIAPINE. [Concomitant]
     Active Substance: QUETIAPINE
  2. RAMIPRIL. [Concomitant]
     Active Substance: RAMIPRIL
  3. COUMADIN [Concomitant]
     Active Substance: WARFARIN SODIUM
  4. ESOMEPRAZOLE [Concomitant]
     Active Substance: ESOMEPRAZOLE
  5. LANOXIN [Suspect]
     Active Substance: DIGOXIN
     Indication: CARDIAC FAILURE
     Dates: start: 20170101, end: 20171111
  6. NITROFURANTOIN MACROCRYSTALS [Concomitant]
     Active Substance: NITROFURANTOIN
  7. TRITTICO [Concomitant]
     Active Substance: TRAZODONE HYDROCHLORIDE

REACTIONS (3)
  - Acute kidney injury [Unknown]
  - Bradycardia [Unknown]
  - Anuria [Unknown]

NARRATIVE: CASE EVENT DATE: 20171111
